FAERS Safety Report 24888588 (Version 1)
Quarter: 2025Q1

REPORT INFORMATION
  Report Type: Spontaneous
  Country: US (occurrence: None)
  Receive Date: 20250123
  Receipt Date: 20250123
  Transmission Date: 20250408
  Serious: Yes (Hospitalization)
  Sender: FDA-CTU
  Company Number: None

PATIENT
  Age: 68 Year
  Sex: Male

DRUGS (1)
  1. APIXABAN [Suspect]
     Active Substance: APIXABAN
     Indication: Atrial fibrillation

REACTIONS (7)
  - Haemorrhage [None]
  - Hepatic cirrhosis [None]
  - Hepatic encephalopathy [None]
  - Haematemesis [None]
  - Haemoglobin decreased [None]
  - Portal hypertension [None]
  - Heart failure with preserved ejection fraction [None]

NARRATIVE: CASE EVENT DATE: 20241218
